FAERS Safety Report 5961025-8 (Version None)
Quarter: 2008Q4

REPORT INFORMATION
  Report Type: 
  Country: None (occurrence: None)
  Receive Date: 20081121
  Receipt Date: 20080603
  Transmission Date: 20090506
  Serious: No
  Sender: FDA-Public Use
  Company Number: A0730871A

PATIENT
  Age: 80 Year
  Sex: Male

DRUGS (3)
  1. LANOXIN [Suspect]
     Indication: ATRIAL FIBRILLATION
     Dosage: .25MG PER DAY
     Route: 048
     Dates: start: 20080512
  2. COZAAR [Suspect]
     Dosage: 50MG PER DAY
     Dates: start: 20080601
  3. MEVACOR [Concomitant]

REACTIONS (2)
  - HEART RATE IRREGULAR [None]
  - POLLAKIURIA [None]
